FAERS Safety Report 9056918 (Version 1)
Quarter: 2013Q1

REPORT INFORMATION
  Report Type: Spontaneous
  Country: US (occurrence: US)
  Receive Date: 20130201
  Receipt Date: 20130201
  Transmission Date: 20140127
  Serious: Yes (Other)
  Sender: FDA-Public Use
  Company Number: US-ROCHE-1014227

PATIENT
  Sex: Male
  Weight: 95.34 kg

DRUGS (2)
  1. ACCUTANE [Suspect]
     Indication: ACNE
     Route: 065
     Dates: start: 1991
  2. ACCUTANE [Suspect]
     Route: 065
     Dates: start: 1993, end: 1994

REACTIONS (6)
  - Colitis ulcerative [Unknown]
  - Inflammatory bowel disease [Unknown]
  - Gastrointestinal injury [Unknown]
  - Dysplasia [Unknown]
  - Intestinal obstruction [Unknown]
  - Large intestine polyp [Unknown]
